FAERS Safety Report 23526765 (Version 7)
Quarter: 2025Q2

REPORT INFORMATION
  Report Type: Report from Study
  Country: CA (occurrence: CA)
  Receive Date: 20240215
  Receipt Date: 20250620
  Transmission Date: 20250716
  Serious: Yes (Disabling, Other)
  Sender: BIOCON
  Company Number: CA-MYLANLABS-2023M1016894

PATIENT

DRUGS (12)
  1. HULIO [Suspect]
     Active Substance: ADALIMUMAB-FKJP
     Indication: Crohn^s disease
     Dosage: 40 MG, Q2W
     Route: 058
     Dates: start: 20230116
  2. HULIO [Suspect]
     Active Substance: ADALIMUMAB-FKJP
     Indication: Anal fistula
     Route: 058
  3. HULIO [Suspect]
     Active Substance: ADALIMUMAB-FKJP
     Route: 058
  4. HULIO [Suspect]
     Active Substance: ADALIMUMAB-FKJP
     Route: 058
     Dates: start: 202304
  5. HULIO [Suspect]
     Active Substance: ADALIMUMAB-FKJP
     Dosage: 40 MG, Q2W ( EVERY OTHER WEEK)
     Route: 058
     Dates: start: 20231228
  6. HULIO [Suspect]
     Active Substance: ADALIMUMAB-FKJP
     Route: 058
     Dates: start: 20230116
  7. HULIO [Suspect]
     Active Substance: ADALIMUMAB-FKJP
     Route: 058
     Dates: start: 20240124
  8. HULIO [Suspect]
     Active Substance: ADALIMUMAB-FKJP
     Route: 058
     Dates: start: 20230116
  9. IMURAN [Concomitant]
     Active Substance: AZATHIOPRINE
     Indication: Product used for unknown indication
     Route: 065
  10. SHINGRIX [Concomitant]
     Active Substance: RECOMBINANT VARICELLA ZOSTER VIRUS (VZV) GLYCOPROTEIN E
     Indication: Product used for unknown indication
     Route: 065
     Dates: start: 20250613
  11. MORPHINE [Concomitant]
     Active Substance: MORPHINE
     Indication: Product used for unknown indication
     Route: 065
  12. LYRICA [Concomitant]
     Active Substance: PREGABALIN
     Indication: Product used for unknown indication
     Route: 065

REACTIONS (60)
  - Loss of personal independence in daily activities [Unknown]
  - Inflammatory bowel disease [Unknown]
  - Nephrolithiasis [Unknown]
  - Lupus-like syndrome [Unknown]
  - Headache [Unknown]
  - Feeling hot [Unknown]
  - Nasal septum deviation [Unknown]
  - Toothache [Unknown]
  - Feeling abnormal [Unknown]
  - Exostosis [Unknown]
  - Aphthous ulcer [Unknown]
  - Post-traumatic stress disorder [Unknown]
  - Adenomyosis [Unknown]
  - Photosensitivity reaction [Unknown]
  - Joint swelling [Unknown]
  - Arthralgia [Unknown]
  - Constipation [Unknown]
  - Fistula [Unknown]
  - Drug intolerance [Unknown]
  - Throat irritation [Unknown]
  - Anosmia [Unknown]
  - Ageusia [Unknown]
  - Pain [Unknown]
  - Pain [Unknown]
  - Burning sensation [Unknown]
  - Frequent bowel movements [Unknown]
  - Female genital tract fistula [Unknown]
  - Adverse reaction [Unknown]
  - Drug level decreased [Unknown]
  - Endometriosis [Unknown]
  - Oropharyngeal pain [Unknown]
  - Lymphadenopathy [Unknown]
  - Malaise [Unknown]
  - Fatigue [Unknown]
  - Pelvic discomfort [Unknown]
  - Tooth fracture [Unknown]
  - Anxiety [Unknown]
  - Hyperhidrosis [Unknown]
  - Thyroid cyst [Unknown]
  - Irritable bowel syndrome [Unknown]
  - Muscular weakness [Unknown]
  - Body temperature increased [Unknown]
  - Alopecia [Unknown]
  - Vomiting [Unknown]
  - Pharyngitis streptococcal [Unknown]
  - Herpes zoster [Recovered/Resolved]
  - Palpitations [Unknown]
  - Nausea [Unknown]
  - Abdominal pain [Unknown]
  - Oral candidiasis [Unknown]
  - COVID-19 [Unknown]
  - Sinusitis [Unknown]
  - Infection [Unknown]
  - Tooth infection [Unknown]
  - Drug ineffective [Unknown]
  - Inappropriate schedule of product administration [Unknown]
  - Extra dose administered [Unknown]
  - Product prescribing issue [Unknown]
  - Product dose omission issue [Unknown]
  - Off label use [Unknown]

NARRATIVE: CASE EVENT DATE: 20220101
